APPROVED DRUG PRODUCT: ITRACONAZOLE
Active Ingredient: ITRACONAZOLE
Strength: 100MG
Dosage Form/Route: CAPSULE;ORAL
Application: A205724 | Product #001 | TE Code: AB
Applicant: RISING PHARMA HOLDINGS INC
Approved: Dec 13, 2016 | RLD: No | RS: No | Type: RX